FAERS Safety Report 25835237 (Version 1)
Quarter: 2025Q3

REPORT INFORMATION
  Report Type: Spontaneous
  Country: EU (occurrence: EU)
  Receive Date: 20250923
  Receipt Date: 20250923
  Transmission Date: 20251020
  Serious: Yes (Hospitalization, Other)
  Sender: RANBAXY
  Company Number: EU-BFARM-25004011

PATIENT
  Age: 82 Year
  Sex: Female

DRUGS (16)
  1. OLANZAPINE [Suspect]
     Active Substance: OLANZAPINE
     Indication: Product used for unknown indication
     Dosage: 5 MILLIGRAM, DAILY, BERGINN: FOR A LONG TIME
     Route: 048
     Dates: end: 20250209
  2. OLANZAPINE [Suspect]
     Active Substance: OLANZAPINE
     Dosage: 7.5 MILLIGRAM, DAILY
     Route: 048
     Dates: start: 20250210, end: 20250224
  3. OLANZAPINE [Suspect]
     Active Substance: OLANZAPINE
     Dosage: 10 MILLIGRAM, DAILY
     Route: 048
     Dates: start: 20250225, end: 20250302
  4. OLANZAPINE [Suspect]
     Active Substance: OLANZAPINE
     Dosage: 7.5 MILLIGRAM, DAILY
     Route: 048
     Dates: start: 20250303, end: 20250306
  5. OLANZAPINE [Suspect]
     Active Substance: OLANZAPINE
     Dosage: 5 MILLIGRAM, DAILY
     Route: 048
     Dates: start: 20250307
  6. ATORVASTATIN [Suspect]
     Active Substance: ATORVASTATIN
     Indication: Lipids increased
     Dosage: 40 MILLIGRAM, DAILY, FOR A LONG TIME - B.A.W.
     Route: 048
  7. CANDESARTAN [Suspect]
     Active Substance: CANDESARTAN
     Indication: Drug therapy
     Dosage: 16 MILLIGRAM, DAILY, FOR A LONG TIME - B.A.W.
     Route: 048
  8. MIRTAZAPINE [Suspect]
     Active Substance: MIRTAZAPINE
     Indication: Product used for unknown indication
     Dosage: 7.5 MILLIGRAM, DAILY
     Route: 048
     Dates: start: 2025
  9. MIRTAZAPINE [Suspect]
     Active Substance: MIRTAZAPINE
     Dosage: 15 MILLIGRAM, DAILY
     Route: 048
     Dates: start: 20250303, end: 20250305
  10. MIRTAZAPINE [Suspect]
     Active Substance: MIRTAZAPINE
     Dosage: 15 MILLIGRAM, DAILY
     Route: 048
     Dates: start: 20250307, end: 20250309
  11. HYDROXYCHLOROQUINE [Suspect]
     Active Substance: HYDROXYCHLOROQUINE
     Indication: Analgesic therapy
     Dosage: 200 MILLIGRAM, DAILY, FOR A LONG TIME - B.A.W.
     Route: 048
  12. CHOLECALCIFEROL [Concomitant]
     Active Substance: CHOLECALCIFEROL
     Indication: Osteoporosis
     Dosage: 20 INTERNATIONAL UNIT, WEEKLY, FOR A LONG TIME - B.A.W.
     Route: 048
  13. FLUTICASONE FUROATE\VILANTEROL TRIFENATATE [Concomitant]
     Active Substance: FLUTICASONE FUROATE\VILANTEROL TRIFENATATE
     Indication: Drug therapy
     Dosage: 1 DOSAGE FORM, DAILY, FOR A LONG TIME - B.A.W..
     Route: 065
  14. FOLIC ACID [Concomitant]
     Active Substance: FOLIC ACID
     Indication: Drug therapy
     Dosage: 5 MILLIGRAM, WEEKLY, FOR A LONG TIME - B.A.W. 5MG/WEEK (SATURDAYS)
     Route: 065
  15. METHOTREXATE SODIUM [Concomitant]
     Active Substance: METHOTREXATE SODIUM
     Indication: Drug therapy
     Dosage: 10 MILLIGRAM, WEEKLY, FOR A LONG TIME - B.A.W. 10MG/WEEK (FRIDAYS)
     Route: 065
  16. ASPIRIN [Concomitant]
     Active Substance: ASPIRIN
     Indication: Analgesic therapy
     Dosage: 100 MILLIGRAM, DAILY, FOR A LONG TIME - B.A.W.
     Route: 048

REACTIONS (6)
  - Fall [Recovered/Resolved]
  - Dizziness [Recovered/Resolved]
  - Lumbar vertebral fracture [Recovered/Resolved]
  - Pelvic fracture [Recovered/Resolved]
  - Hypotension [Recovered/Resolved]
  - Wheelchair user [Not Recovered/Not Resolved]
